FAERS Safety Report 4590058-1 (Version None)
Quarter: 2005Q1

REPORT INFORMATION
  Report Type: 
  Country: None (occurrence: None)
  Receive Date: 20050217
  Receipt Date: 20050217
  Transmission Date: 20050727
  Serious: Yes (Hospitalization, Other)
  Sender: FDA-Public Use
  Company Number: None

PATIENT
  Age: 35 Year
  Sex: Female
  Weight: 74.8435 kg

DRUGS (2)
  1. ADVIL LIQUI-GELS [Suspect]
     Indication: INFLAMMATION
     Dosage: 2 X A DAY FOR 4 DAYS
  2. ADVIL LIQUI-GELS [Suspect]
     Indication: PAIN
     Dosage: 2 X A DAY FOR 4 DAYS

REACTIONS (5)
  - ASTHMA [None]
  - CONDITION AGGRAVATED [None]
  - EYE DISCHARGE [None]
  - HYPERSENSITIVITY [None]
  - STEVENS-JOHNSON SYNDROME [None]
